FAERS Safety Report 8070880-X (Version None)
Quarter: 2012Q1

REPORT INFORMATION
  Report Type: 
  Country: None (occurrence: None)
  Receive Date: 20120125
  Receipt Date: 20120120
  Transmission Date: 20120608
  Serious: No
  Sender: FDA-Public Use
  Company Number: US-PFIZER INC-2012017202

PATIENT
  Sex: Female
  Weight: 21.769 kg

DRUGS (4)
  1. ACETAMINOPHEN [Concomitant]
     Indication: PYREXIA
     Dosage: UNK
  2. BUDESONIDE [Concomitant]
     Indication: ASTHMA
     Dosage: UNK
  3. ALBUTEROL [Concomitant]
     Indication: ASTHMA
     Dosage: UNK
  4. CHILDREN'S ADVIL [Suspect]
     Indication: PYREXIA
     Dosage: UNK, 2X/DAY
     Route: 048
     Dates: start: 20120119, end: 20120119

REACTIONS (2)
  - LIP SWELLING [None]
  - GLOSSODYNIA [None]
